FAERS Safety Report 5677226-2 (Version None)
Quarter: 2008Q1

REPORT INFORMATION
  Report Type: 
  Country: None (occurrence: None)
  Receive Date: 20080324
  Receipt Date: 20080317
  Transmission Date: 20080703
  Serious: Yes (Hospitalization, Other)
  Sender: FDA-Public Use
  Company Number: US-ASTRAZENECA-2008UW05027

PATIENT
  Age: 36 Year
  Sex: Male
  Weight: 84.8 kg

DRUGS (8)
  1. SYMBICORT [Suspect]
     Indication: ASTHMA
     Dosage: 160/4.5,  2 INHALATIONS BID
     Route: 055
  2. SYMBICORT [Suspect]
     Indication: EMPHYSEMA
     Dosage: 160/4.5,  2 INHALATIONS BID
     Route: 055
  3. ALBUTEROL [Concomitant]
  4. ADVAIR DISKUS 100/50 [Concomitant]
  5. ADVAIR DISKUS 100/50 [Concomitant]
  6. SINGULAIR [Concomitant]
  7. MUCINEX D [Concomitant]
  8. COMBIVENT [Concomitant]

REACTIONS (7)
  - BLOOD PRESSURE INCREASED [None]
  - DEHYDRATION [None]
  - EPISTAXIS [None]
  - HEADACHE [None]
  - INFLUENZA [None]
  - PNEUMONIA [None]
  - PYREXIA [None]
